FAERS Safety Report 9704697 (Version 1)
Quarter: 2013Q4

REPORT INFORMATION
  Report Type: Spontaneous
  Country: IT (occurrence: IT)
  Receive Date: 20131122
  Receipt Date: 20131122
  Transmission Date: 20140711
  Serious: Yes (Other)
  Sender: FDA-Public Use
  Company Number: IT-JNJFOC-20131108517

PATIENT
  Sex: 0

DRUGS (4)
  1. DOXORUBICIN [Suspect]
     Indication: GASTRIC CANCER
     Route: 042
  2. 5-FLUOROURACIL [Suspect]
     Indication: GASTRIC CANCER
     Route: 065
  3. METHOTREXATE [Suspect]
     Indication: GASTRIC CANCER
     Route: 065
  4. DOCETAXEL [Suspect]
     Indication: GASTRIC CANCER
     Route: 065

REACTIONS (2)
  - Adverse drug reaction [Unknown]
  - Off label use [Recovered/Resolved]
